FAERS Safety Report 23825002 (Version 1)
Quarter: 2024Q2

REPORT INFORMATION
  Report Type: Report from Study
  Country: DE (occurrence: US)
  Receive Date: 20240507
  Receipt Date: 20240507
  Transmission Date: 20240715
  Serious: Yes (Death, Other)
  Sender: FDA-Public Use
  Company Number: DE-ROCHE-3258193

PATIENT
  Age: 58 Year
  Sex: Female

DRUGS (11)
  1. METHOTREXATE [Suspect]
     Active Substance: METHOTREXATE
     Indication: Prophylaxis against transplant rejection
     Dosage: UNK
     Route: 065
  2. AZATHIOPRINE [Suspect]
     Active Substance: AZATHIOPRINE
     Indication: Granulomatosis with polyangiitis
     Dosage: 400 MG/M2, ONCE A DAY (400 MG/M2 (DAY 2))
     Route: 065
  3. CARMUSTINE [Suspect]
     Active Substance: CARMUSTINE
     Indication: Autologous haematopoietic stem cell transplant
     Dosage: 400 MG/M2 (400 MG/M2 (DAY 2))
     Route: 042
  4. CYTARABINE [Suspect]
     Active Substance: CYTARABINE
     Indication: Autologous haematopoietic stem cell transplant
     Dosage: 3000 MG/M2
     Route: 065
  5. CYTARABINE [Suspect]
     Active Substance: CYTARABINE
     Indication: Chemotherapy
     Dosage: UNK (1 X R-TT/ARAC)
     Route: 065
  6. RITUXIMAB [Suspect]
     Active Substance: RITUXIMAB
     Indication: Autologous haematopoietic stem cell transplant
     Dosage: 375 MG/M2 (375 MG/M2 (DAY 1))
     Route: 042
  7. RITUXIMAB [Suspect]
     Active Substance: RITUXIMAB
     Indication: Chemotherapy
     Dosage: UNK (1 X R-TT/ARAC)
     Route: 042
  8. THIOTEPA [Suspect]
     Active Substance: THIOTEPA
     Indication: Autologous haematopoietic stem cell transplant
     Dosage: 40 MG/M2
     Route: 065
  9. THIOTEPA [Suspect]
     Active Substance: THIOTEPA
     Indication: Chemotherapy
     Dosage: 10 MG/M2
     Route: 065
  10. THIOTEPA [Suspect]
     Active Substance: THIOTEPA
     Dosage: 5 MG/M2 (5 MG/KG, EVERY 0.5 DAY (2X5 MG/KG/DAY FOR 2 DAYS (DAYS 3 AND 4))
     Route: 042
  11. THIOTEPA [Suspect]
     Active Substance: THIOTEPA
     Dosage: UNK (1 X R-TT/ARAC)
     Route: 065

REACTIONS (3)
  - Disease progression [Fatal]
  - Infection [Unknown]
  - Off label use [Unknown]
